FAERS Safety Report 11690688 (Version 2)
Quarter: 2015Q4

REPORT INFORMATION
  Report Type: Spontaneous
  Country: MX (occurrence: MX)
  Receive Date: 20151102
  Receipt Date: 20151113
  Transmission Date: 20160304
  Serious: Yes (Other)
  Sender: FDA-Public Use
  Company Number: MX-HORIZON-ACT-0180-2015

PATIENT
  Age: 16 Year
  Sex: Male
  Weight: 150 kg

DRUGS (4)
  1. IMUKIN [Suspect]
     Active Substance: INTERFERON GAMMA
     Indication: CHRONIC GRANULOMATOUS DISEASE
     Dosage: 65 ?G DAILY
     Route: 058
     Dates: start: 20141020
  2. HYDROXYCHLOROQUINE [Concomitant]
     Active Substance: HYDROXYCHLOROQUINE
     Indication: INFLAMMATORY BOWEL DISEASE
     Dosage: 200 MG DAILY
     Route: 048
     Dates: start: 20150620
  3. TRIMETHOPRIM. [Concomitant]
     Active Substance: TRIMETHOPRIM
     Indication: ANTIBIOTIC PROPHYLAXIS
     Dosage: 60 MG DAILY
     Route: 048
     Dates: start: 20141120
  4. ITRACONAZOLE. [Concomitant]
     Active Substance: ITRACONAZOLE
     Indication: ANTIFUNGAL PROPHYLAXIS
     Dosage: 100 MG DAILY
     Route: 048
     Dates: start: 20141120

REACTIONS (1)
  - Enterocutaneous fistula [Not Recovered/Not Resolved]
